FAERS Safety Report 8200118-1 (Version None)
Quarter: 2012Q1

REPORT INFORMATION
  Report Type: 
  Country: None (occurrence: None)
  Receive Date: 20120306
  Receipt Date: 20120229
  Transmission Date: 20120608
  Serious: Yes (Hospitalization)
  Sender: FDA-Public Use
  Company Number: A0968078A

PATIENT
  Age: 70 Year
  Sex: Male

DRUGS (3)
  1. CARVEDILOL [Suspect]
  2. VALSARTAN [Suspect]
  3. SPIRONOLACTONE (FORMULATION UNKNOWN) (GENERIC) (SPIRONOLACTONE) [Suspect]

REACTIONS (6)
  - OEDEMA [None]
  - HYPERKALAEMIA [None]
  - SINUS ARREST [None]
  - RALES [None]
  - ATRIOVENTRICULAR BLOCK [None]
  - RESPIRATORY DISTRESS [None]
